FAERS Safety Report 7647341-2 (Version None)
Quarter: 2011Q3

REPORT INFORMATION
  Report Type: 
  Country: None (occurrence: None)
  Receive Date: 20110729
  Receipt Date: 20110729
  Transmission Date: 20111222
  Serious: Yes (Hospitalization)
  Sender: FDA-Public Use
  Company Number: None

PATIENT
  Sex: Female
  Weight: 58.9 kg

DRUGS (5)
  1. ONDANSETRON [Concomitant]
  2. CARBOPLATIN [Suspect]
     Dosage: 591 MG
     Dates: end: 20110721
  3. DILTIAZEM [Concomitant]
  4. TAXOL [Suspect]
     Dosage: 130 MG
     Dates: end: 20110721
  5. TOPROL-XL [Concomitant]

REACTIONS (4)
  - ABDOMINAL DISTENSION [None]
  - CONSTIPATION [None]
  - ABDOMINAL PAIN [None]
  - FAECALOMA [None]
